FAERS Safety Report 8002089-X (Version None)
Quarter: 2011Q4

REPORT INFORMATION
  Report Type: 
  Country: None (occurrence: None)
  Receive Date: 20111222
  Receipt Date: 20111215
  Transmission Date: 20120403
  Serious: Yes (Hospitalization)
  Sender: FDA-Public Use
  Company Number: ES-ABBOTT-11P-144-0883920-00

PATIENT
  Sex: Female

DRUGS (2)
  1. PRIMIDONE [Concomitant]
     Indication: PETIT MAL EPILEPSY
  2. HUMIRA [Suspect]
     Indication: PSORIASIS
     Route: 058
     Dates: start: 20110526, end: 20111001

REACTIONS (8)
  - ABDOMINAL PAIN [None]
  - ADHESION [None]
  - PELVIC INFLAMMATORY DISEASE [None]
  - PSEUDOCYST [None]
  - TUBO-OVARIAN ABSCESS [None]
  - VAGINAL DISCHARGE [None]
  - PURULENT DISCHARGE [None]
  - ILEUS PARALYTIC [None]
